FAERS Safety Report 17142029 (Version 1)
Quarter: 2019Q4

REPORT INFORMATION
  Report Type: Spontaneous
  Country: US (occurrence: US)
  Receive Date: 20191211
  Receipt Date: 20191211
  Transmission Date: 20200122
  Serious: No
  Sender: FDA-Public Use
  Company Number: US-JNJFOC-20191215895

PATIENT
  Age: 75 Year
  Sex: Male
  Weight: 65.77 kg

DRUGS (1)
  1. HALDOL [Suspect]
     Active Substance: HALOPERIDOL
     Indication: ANXIETY
     Route: 065

REACTIONS (1)
  - Flat affect [Unknown]

NARRATIVE: CASE EVENT DATE: 20150710
